FAERS Safety Report 11695578 (Version 1)
Quarter: 2015Q4

REPORT INFORMATION
  Report Type: Spontaneous
  Country: US (occurrence: US)
  Receive Date: 20151104
  Receipt Date: 20151104
  Transmission Date: 20160304
  Serious: Yes (Other)
  Sender: FDA-Public Use
  Company Number: US-ACCORD-034996

PATIENT
  Age: 71 Year
  Sex: Female
  Weight: 63.64 kg

DRUGS (4)
  1. SYNTHROID [Concomitant]
     Active Substance: LEVOTHYROXINE SODIUM
     Dosage: STRENGTH: 0.25 MG
  2. CARBIDOPA/LEVODOPA [Suspect]
     Active Substance: CARBIDOPA\LEVODOPA
     Indication: PARKINSON^S DISEASE
     Dosage: SUSTAINE RELEASE TABLETS, ?5/200 MG
     Route: 048
     Dates: start: 201509
  3. ROPINIROLE/ROPINIROLE HYDROCHLORIDE [Suspect]
     Active Substance: ROPINIROLE HYDROCHLORIDE
     Indication: PARKINSON^S DISEASE
     Dosage: EXTENDED RELEASE TABLETS,?SOMETIME IN 2011 TO PRESENT
     Route: 048
     Dates: start: 2011
  4. AZILECT [Concomitant]
     Active Substance: RASAGILINE MESYLATE
     Dosage: STRENGTH: 1 MG

REACTIONS (5)
  - Parkinson^s disease [Not Recovered/Not Resolved]
  - Anxiety [Not Recovered/Not Resolved]
  - Condition aggravated [None]
  - Muscle twitching [Not Recovered/Not Resolved]
  - Feeling jittery [Not Recovered/Not Resolved]

NARRATIVE: CASE EVENT DATE: 201509
